FAERS Safety Report 7701737-9 (Version None)
Quarter: 2011Q3

REPORT INFORMATION
  Report Type: 
  Country: None (occurrence: None)
  Receive Date: 20110822
  Receipt Date: 20110817
  Transmission Date: 20111222
  Serious: Yes (Hospitalization, Disabling, Other)
  Sender: FDA-Public Use
  Company Number: US-PFIZER INC-2011104251

PATIENT
  Sex: Male

DRUGS (1)
  1. CHANTIX [Suspect]
     Indication: SMOKING CESSATION THERAPY
     Dosage: 0.5 MG, THEN 1MG
     Dates: start: 20070904, end: 20080101

REACTIONS (8)
  - LEG AMPUTATION [None]
  - SUICIDE ATTEMPT [None]
  - INTENTIONAL OVERDOSE [None]
  - BIPOLAR DISORDER [None]
  - LIMB INJURY [None]
  - POOR PERIPHERAL CIRCULATION [None]
  - LOSS OF CONSCIOUSNESS [None]
  - DEPRESSION [None]
